FAERS Safety Report 13090199 (Version 2)
Quarter: 2017Q1

REPORT INFORMATION
  Report Type: Spontaneous
  Country: IT (occurrence: IT)
  Receive Date: 20170105
  Receipt Date: 20170118
  Transmission Date: 20170428
  Serious: Yes (Other)
  Sender: FDA-Public Use
  Company Number: IT-ABBVIE-17P-083-1829882-00

PATIENT
  Age: 1 Year
  Sex: Male

DRUGS (2)
  1. VECLAM [Suspect]
     Active Substance: CLARITHROMYCIN
     Indication: EAR PAIN
     Dosage: 125 MG/5ML, 1 UT
     Route: 048
     Dates: start: 20161010, end: 20161015
  2. TACHIPIRINA [Concomitant]
     Active Substance: ACETAMINOPHEN
     Indication: PRODUCT USED FOR UNKNOWN INDICATION
     Dosage: 120MG/5ML

REACTIONS (2)
  - Dysentery [Unknown]
  - Diarrhoea [Unknown]

NARRATIVE: CASE EVENT DATE: 20161014
